FAERS Safety Report 6795418-6 (Version None)
Quarter: 2010Q2

REPORT INFORMATION
  Report Type: 
  Country: None (occurrence: None)
  Receive Date: 20100625
  Receipt Date: 20100615
  Transmission Date: 20101027
  Serious: Yes (Hospitalization)
  Sender: FDA-Public Use
  Company Number: US-ABBOTT-10P-163-0652369-00

PATIENT
  Sex: Male
  Weight: 85.352 kg

DRUGS (3)
  1. NIASPAN [Suspect]
     Indication: CAROTID ARTERIOSCLEROSIS
     Dates: start: 20091101, end: 20100418
  2. METFORMIN HCL [Concomitant]
     Indication: DRUG USE FOR UNKNOWN INDICATION
  3. LEVOTHYROXINE SODIUM [Concomitant]
     Indication: DRUG USE FOR UNKNOWN INDICATION

REACTIONS (5)
  - BLOOD PRESSURE DECREASED [None]
  - FLUSHING [None]
  - LOSS OF CONSCIOUSNESS [None]
  - MYALGIA [None]
  - PRURITUS [None]
